FAERS Safety Report 5709720-X (Version None)
Quarter: 2008Q2

REPORT INFORMATION
  Report Type: 
  Country: None (occurrence: None)
  Receive Date: 20080418
  Receipt Date: 20080118
  Transmission Date: 20081010
  Serious: No
  Sender: FDA-Public Use
  Company Number: US-ASTRAZENECA-2008UW01480

PATIENT
  Age: 59 Year
  Sex: Male
  Weight: 113.4 kg

DRUGS (6)
  1. CASODEX [Suspect]
     Indication: PROSTATE CANCER
     Route: 048
  2. LUPRON [Concomitant]
  3. CLOZAPINE [Concomitant]
  4. HYDROCHLOROTHIAZIDE [Concomitant]
  5. QUINAPRIL HCL [Concomitant]
  6. PROPRANOLOL [Concomitant]

REACTIONS (9)
  - ABDOMINAL PAIN [None]
  - ERUCTATION [None]
  - FLATULENCE [None]
  - HEADACHE [None]
  - HOT FLUSH [None]
  - INJURY [None]
  - POSTNASAL DRIP [None]
  - VISUAL DISTURBANCE [None]
  - WEIGHT INCREASED [None]
